FAERS Safety Report 4438141-5 (Version None)
Quarter: 2004Q3

REPORT INFORMATION
  Report Type: 
  Country: None (occurrence: None)
  Receive Date: 20040831
  Receipt Date: 20040601
  Transmission Date: 20050211
  Serious: No
  Sender: FDA-Public Use
  Company Number: US-GLAXOSMITHKLINE-A0512874A

PATIENT
  Age: 57 Year
  Sex: Female

DRUGS (12)
  1. WELLBUTRIN XL [Suspect]
     Indication: DEPRESSION
     Dosage: 150MG PER DAY
     Route: 048
     Dates: start: 20040501, end: 20040501
  2. LEXAPRO [Concomitant]
  3. FOSAMAX [Concomitant]
  4. NASONEX [Concomitant]
  5. ASTELIN [Concomitant]
  6. ADVAIR DISKUS 100/50 [Concomitant]
  7. COMBIVENT [Concomitant]
  8. KLONOPIN [Concomitant]
  9. PROTONIX [Concomitant]
  10. HYDROXYZINE [Concomitant]
  11. DAPSONE [Concomitant]
  12. WELLBUTRIN SR [Concomitant]

REACTIONS (1)
  - DERMATITIS HERPETIFORMIS [None]
